FAERS Safety Report 5125220-2 (Version None)
Quarter: 2006Q4

REPORT INFORMATION
  Report Type: 
  Country: None (occurrence: None)
  Receive Date: 20061006
  Receipt Date: 20060928
  Transmission Date: 20070319
  Serious: Yes (Hospitalization)
  Sender: FDA-Public Use
  Company Number: 2006-02529

PATIENT
  Age: 56 Year

DRUGS (7)
  1. VELCADE [Suspect]
     Indication: MULTIPLE MYELOMA
  2. DOXORUBICIN HCL [Suspect]
     Indication: MULTIPLE MYELOMA
  3. DEXAMETHASONE [Suspect]
     Indication: MULTIPLE MYELOMA
  4. PANTOPRAZOLE SODIUM [Concomitant]
  5. COTRIM [Concomitant]
  6. FLUCONAZOLE [Concomitant]
  7. ENALAPRIL MALEATE [Concomitant]

REACTIONS (2)
  - KERATITIS HERPETIC [None]
  - PAIN [None]
